FAERS Safety Report 25901020 (Version 1)
Quarter: 2025Q4

REPORT INFORMATION
  Report Type: Spontaneous
  Country: EU (occurrence: EU)
  Receive Date: 20251009
  Receipt Date: 20251009
  Transmission Date: 20260118
  Serious: Yes (Other)
  Sender: TORRENT PHARMA INC.
  Company Number: None

PATIENT
  Age: 70 Year
  Sex: Female

DRUGS (3)
  1. ROSUVASTATIN [Suspect]
     Active Substance: ROSUVASTATIN
     Indication: Type IIa hyperlipidaemia
     Dosage: UNKNOWN
     Route: 065
  2. IMATINIB [Suspect]
     Active Substance: IMATINIB
     Indication: Product used for unknown indication
     Dosage: UNKNOWN
     Route: 065
  3. REPATHA [Concomitant]
     Active Substance: EVOLOCUMAB
     Indication: Type IIa hyperlipidaemia
     Dosage: UNKNOWN
     Route: 058

REACTIONS (4)
  - Hypotension [Unknown]
  - Blood cholesterol decreased [Unknown]
  - Drug level increased [Unknown]
  - Drug abuse [Unknown]
